FAERS Safety Report 8986718 (Version 1)
Quarter: 2012Q4

REPORT INFORMATION
  Report Type: Spontaneous
  Country: US (occurrence: None)
  Receive Date: 20121219
  Receipt Date: 20121219
  Transmission Date: 20130627
  Serious: Yes (Other)
  Sender: FDA-Public Use
  Company Number: None

PATIENT
  Age: 87 Year
  Sex: Female
  Weight: 56.25 kg

DRUGS (2)
  1. SIMVASTATIN [Suspect]
     Indication: HIGH CHOLESTEROL
     Route: 048
     Dates: start: 20120101, end: 20121209
  2. ATENOLOL [Suspect]
     Indication: BLOOD PRESSURE HIGH
     Dates: start: 20120201, end: 20121212

REACTIONS (13)
  - Dizziness [None]
  - Muscular weakness [None]
  - Musculoskeletal pain [None]
  - Back pain [None]
  - Headache [None]
  - Road traffic accident [None]
  - Hypertension [None]
  - Mobility decreased [None]
  - Hypoaesthesia [None]
  - Walking aid user [None]
  - Chest pain [None]
  - Dysphagia [None]
  - Dysgeusia [None]
